FAERS Safety Report 4277961-7 (Version None)
Quarter: 2004Q1

REPORT INFORMATION
  Report Type: 
  Country: None (occurrence: None)
  Receive Date: 20040121
  Receipt Date: 20040107
  Transmission Date: 20041129
  Serious: Yes (Hospitalization)
  Sender: FDA-Public Use
  Company Number: HQWYE190808JAN04

PATIENT

DRUGS (2)
  1. DIAMOX [Suspect]
     Dosage: INTRAVENOUS
     Route: 042
  2. TRANSAMIN (TRANEXAMIC ACID) [Concomitant]

REACTIONS (1)
  - SHOCK [None]
